FAERS Safety Report 4316738-0 (Version None)
Quarter: 2004Q1

REPORT INFORMATION
  Report Type: 
  Country: None (occurrence: None)
  Receive Date: 20040311
  Receipt Date: 20040227
  Transmission Date: 20041129
  Serious: Yes (Life-Threatening, Other)
  Sender: FDA-Public Use
  Company Number: FR-JNJFOC-20030805596

PATIENT
  Age: 20 Year
  Sex: Male

DRUGS (6)
  1. REMICADE [Suspect]
     Indication: CROHN'S DISEASE
     Dosage: 400 MG, 1 IN 1 DAY, INTRAVENOUS
     Route: 042
     Dates: start: 20001030, end: 20001030
  2. REMICADE [Suspect]
     Indication: CROHN'S DISEASE
     Dosage: 400 MG, 1 IN 1 DAY, INTRAVENOUS
     Route: 042
     Dates: start: 20001211, end: 20001211
  3. PLACEBO (PLACEBO) LYOPHILIZED POWDER [Suspect]
     Indication: CROHN'S DISEASE
     Dosage: 400 MG, 1 IN 1 DAY, INTRAVENOUS
     Route: 042
     Dates: start: 20001030, end: 20001030
  4. PLACEBO (PLACEBO) LYOPHILIZED POWDER [Suspect]
     Indication: CROHN'S DISEASE
     Dosage: 400 MG, 1 IN 1 DAY, INTRAVENOUS
     Route: 042
     Dates: start: 20001211, end: 20001211
  5. AZATHIOPRINE [Concomitant]
  6. PREDNISOLONE [Concomitant]

REACTIONS (7)
  - ASPHYXIA [None]
  - DYSPNOEA [None]
  - FACE OEDEMA [None]
  - HYPOTENSION [None]
  - RASH [None]
  - TACHYCARDIA [None]
  - VOMITING [None]
